FAERS Safety Report 17381717 (Version 2)
Quarter: 2020Q1

REPORT INFORMATION
  Report Type: Spontaneous
  Country: FR (occurrence: FR)
  Receive Date: 20200206
  Receipt Date: 20200218
  Transmission Date: 20200409
  Serious: Yes (Hospitalization, Other)
  Sender: FDA-Public Use
  Company Number: FR-SA-2020SA027181

PATIENT
  Age: 69 Year
  Sex: Male
  Weight: 70 kg

DRUGS (10)
  1. ALVITYL [ASCORBIC ACID;BIOTIN;COLECALCIFEROL;CYANOCOBALAMIN;DEXPANTHEN [Concomitant]
     Dosage: 30 ML, QD
  2. DOCETAXEL. [Suspect]
     Active Substance: DOCETAXEL
     Indication: ADENOCARCINOMA GASTRIC
     Dosage: 92 MG
     Route: 042
     Dates: start: 20191218
  3. OXALIPLATIN. [Suspect]
     Active Substance: OXALIPLATIN
     Indication: ADENOCARCINOMA GASTRIC
     Dosage: 156 MG
     Route: 042
     Dates: start: 20191218
  4. INSULINE [INSULIN PORCINE] [Concomitant]
     Dosage: UNK
  5. STAGID [Concomitant]
     Active Substance: METFORMIN PAMOATE
     Dosage: UNK
     Route: 048
  6. BIPRETERAX [INDAPAMIDE;PERINDOPRIL ARGININE] [Concomitant]
     Active Substance: INDAPAMIDE\PERINDOPRIL ARGININE
     Dosage: 1 DF, QD
     Route: 048
  7. PANTOPRAZOLE [Concomitant]
     Active Substance: PANTOPRAZOLE
     Dosage: UNK
  8. LOW MOLECULAR WEIGHT HEPARIN [Concomitant]
     Active Substance: UNSPECIFIED INGREDIENT
     Dosage: MAMMAL / PIG / INTESTINAL MUCOSA
  9. TRAVATAN [Concomitant]
     Active Substance: TRAVOPROST
     Dosage: UNK
     Route: 047
  10. FLUOROURACIL. [Suspect]
     Active Substance: FLUOROURACIL
     Indication: ADENOCARCINOMA GASTRIC
     Dosage: 156 MG
     Route: 042
     Dates: start: 20191218

REACTIONS (4)
  - Gastrointestinal necrosis [Recovered/Resolved]
  - Diarrhoea [Recovered/Resolved]
  - Hypovolaemic shock [Recovered/Resolved]
  - Neutropenia [Recovered/Resolved]

NARRATIVE: CASE EVENT DATE: 201912
